FAERS Safety Report 9237581 (Version 3)
Quarter: 2013Q3

REPORT INFORMATION
  Report Type: Spontaneous
  Country: ES (occurrence: ES)
  Receive Date: 20130418
  Receipt Date: 20130702
  Transmission Date: 20140515
  Serious: Yes (Hospitalization)
  Sender: FDA-Public Use
  Company Number: ES-ABBOTT-13X-144-1077070-00

PATIENT
  Age: 96 Year
  Sex: Female

DRUGS (3)
  1. NAVIXEN PLUS [Suspect]
     Indication: HYPERTENSION
     Dosage: FORM STRENGTH: 600/12.5 MG
     Route: 048
     Dates: start: 200601, end: 20130215
  2. SUTRIL [Suspect]
     Indication: CARDIAC FAILURE
     Route: 048
     Dates: start: 201102, end: 20130215
  3. RANITIDINE [Concomitant]
     Indication: PRODUCT USED FOR UNKNOWN INDICATION

REACTIONS (3)
  - Cardiac failure [Unknown]
  - Chest pain [Unknown]
  - Hyponatraemia [Recovered/Resolved]
